FAERS Safety Report 5840929-0 (Version None)
Quarter: 2008Q3

REPORT INFORMATION
  Report Type: 
  Country: None (occurrence: None)
  Receive Date: 20080811
  Receipt Date: 20080801
  Transmission Date: 20090109
  Serious: Yes (Hospitalization)
  Sender: FDA-Public Use
  Company Number: FR-PFIZER INC-2008064969

PATIENT
  Sex: Female

DRUGS (15)
  1. TAHOR [Suspect]
     Indication: PROPHYLAXIS
     Route: 048
     Dates: start: 20050101, end: 20080625
  2. AMIODARONE HCL [Concomitant]
  3. NITROGLYCERIN [Concomitant]
  4. VASTAREL [Concomitant]
  5. PLAVIX [Concomitant]
  6. FUROSEMIDE [Concomitant]
  7. GLUCOR [Concomitant]
  8. VERAPAMIL [Concomitant]
  9. ADANCOR [Concomitant]
  10. MONTELUKAST SODIUM [Concomitant]
  11. INSULIN [Concomitant]
  12. INIPOMP [Concomitant]
  13. RISORDAN [Concomitant]
     Route: 042
  14. LOVENOX [Concomitant]
     Route: 042
  15. HYDROCORTISONE [Concomitant]
     Dates: start: 20080618, end: 20080623

REACTIONS (1)
  - CYTOLYTIC HEPATITIS [None]
